FAERS Safety Report 4452602-4 (Version None)
Quarter: 2004Q3

REPORT INFORMATION
  Report Type: 
  Country: None (occurrence: None)
  Receive Date: 20040916
  Receipt Date: 20040907
  Transmission Date: 20050211
  Serious: Yes (Death)
  Sender: FDA-Public Use
  Company Number: 2004232523FR

PATIENT
  Age: 60 Year
  Sex: Female

DRUGS (7)
  1. EPIRUBICIN [Suspect]
     Indication: BREAST CANCER
     Dosage: CYCLIC; IV
     Route: 042
  2. CYCLOPHOSPHAMIDE [Suspect]
     Indication: BREAST CANCER
     Dosage: CYCLIC; IV
     Route: 042
  3. FLUOROURACIL [Suspect]
     Indication: BREAST CANCER
     Dosage: CYCLIC; IV
     Route: 042
  4. ATORVASTATIN CALCIUM [Concomitant]
  5. ALDACTAZIDE [Concomitant]
  6. PAROXETINE HCL [Concomitant]
  7. LYSANXIA (PRAZEPAM) [Concomitant]

REACTIONS (1)
  - SUDDEN DEATH [None]
